FAERS Safety Report 10465299 (Version 1)
Quarter: 2014Q3

REPORT INFORMATION
  Report Type: Spontaneous
  Country: CN (occurrence: CN)
  Receive Date: 20140919
  Receipt Date: 20140919
  Transmission Date: 20150326
  Serious: Yes (Hospitalization)
  Sender: FDA-Public Use
  Company Number: CN-PFIZER INC-2014254018

PATIENT
  Age: 38 Year
  Sex: Male

DRUGS (7)
  1. AZITHROMYCIN [Suspect]
     Active Substance: AZITHROMYCIN ANHYDROUS
     Dosage: 0.5 G, DAILY
     Route: 041
     Dates: start: 2008, end: 2008
  2. AZITHROMYCIN [Suspect]
     Active Substance: AZITHROMYCIN ANHYDROUS
     Dosage: 0.25 MG, 2X/DAY
  3. AZITHROMYCIN [Suspect]
     Active Substance: AZITHROMYCIN ANHYDROUS
     Dosage: 0.5 G, DAILY
     Route: 041
     Dates: start: 20090311, end: 200903
  4. AZITHROMYCIN [Suspect]
     Active Substance: AZITHROMYCIN ANHYDROUS
     Indication: INFECTION PROPHYLAXIS
     Dosage: 0.5 G, DAILY
     Route: 041
     Dates: start: 200803, end: 2008
  5. ACITRETIN [Concomitant]
     Active Substance: ACITRETIN
     Indication: INFECTION PROPHYLAXIS
     Dosage: 30 MG, DAILY
     Route: 048
     Dates: start: 200803, end: 2008
  6. ACITRETIN [Concomitant]
     Active Substance: ACITRETIN
     Dosage: 20 MG, DAILY
     Route: 048
     Dates: start: 2008, end: 200809
  7. ACITRETIN [Concomitant]
     Active Substance: ACITRETIN
     Dosage: 30 MG, DAILY
     Route: 048
     Dates: start: 2008, end: 200903

REACTIONS (2)
  - Eosinophilia [Recovered/Resolved]
  - Dermatitis [Recovered/Resolved]
